FAERS Safety Report 8132433-4 (Version None)
Quarter: 2012Q1

REPORT INFORMATION
  Report Type: 
  Country: None (occurrence: None)
  Receive Date: 20120208
  Receipt Date: 20120201
  Transmission Date: 20120608
  Serious: Yes (Hospitalization)
  Sender: FDA-Public Use
  Company Number: 2012SP005869

PATIENT
  Age: 64 Year
  Sex: Male

DRUGS (7)
  1. NEUPOGEN [Concomitant]
  2. REBETOL [Suspect]
     Indication: HEPATITIS C
     Dosage: 1000 MG, PO
     Route: 048
     Dates: start: 20110503, end: 20110808
  3. RAMIPRIL [Concomitant]
  4. PEG-INTRON [Suspect]
     Indication: HEPATITIS C
     Dosage: 100 MCG, QW, SC
     Route: 058
     Dates: start: 20110503, end: 20110808
  5. HALCION [Concomitant]
  6. BOCEPREVIR (SCH-503034) [Suspect]
     Indication: HEPATITIS C
     Dosage: 2400 MG, PO
     Route: 048
     Dates: start: 20110531, end: 20110808
  7. FOLSAN [Concomitant]

REACTIONS (5)
  - ATAXIA [None]
  - VASCULAR DEMENTIA [None]
  - PANCYTOPENIA [None]
  - VERTIGO [None]
  - FATIGUE [None]
